FAERS Safety Report 5046663-1 (Version None)
Quarter: 2006Q2

REPORT INFORMATION
  Report Type: 
  Country: None (occurrence: None)
  Receive Date: 20060601
  Receipt Date: 20060322
  Transmission Date: 20061013
  Serious: No
  Sender: FDA-Public Use
  Company Number: 2006PV010718

PATIENT
  Age: 52 Year
  Sex: Male
  Weight: 109.7705 kg

DRUGS (2)
  1. BYETTA [Suspect]
     Indication: DIABETES MELLITUS NON-INSULIN-DEPENDENT
     Dosage: 5 MCG;BID;SC
     Route: 058
     Dates: start: 20060120
  2. GLIPIZIDE [Concomitant]

REACTIONS (3)
  - EYE PRURITUS [None]
  - LACRIMATION INCREASED [None]
  - OCULAR HYPERAEMIA [None]
